FAERS Safety Report 20682374 (Version 14)
Quarter: 2022Q3

REPORT INFORMATION
  Report Type: Spontaneous
  Country: CA (occurrence: CA)
  Receive Date: 20220407
  Receipt Date: 20220902
  Transmission Date: 20221027
  Serious: Yes (Hospitalization, Other)
  Sender: FDA-Public Use
  Company Number: CA-CELLTRION INC.-2022CA004164

PATIENT

DRUGS (12)
  1. INFLECTRA [Suspect]
     Active Substance: INFLIXIMAB-DYYB
     Indication: Colitis ulcerative
     Dosage: 10 MG/KG, Q 0, 2 WEEKS, THEN EVERY 8 WEEKS  (IN HOSPITAL)
     Route: 042
     Dates: start: 20220308
  2. INFLECTRA [Suspect]
     Active Substance: INFLIXIMAB-DYYB
     Dosage: 1300 MG, Q 0, 2 WEEKS, THEN EVERY 8 WEEKS (IN HOSPITAL)
     Route: 042
     Dates: start: 20220419
  3. INFLECTRA [Suspect]
     Active Substance: INFLIXIMAB-DYYB
     Dosage: 1300 MG, Q 0, 2 WEEKS, THEN EVERY 8 WEEKS
     Route: 042
     Dates: start: 20220503
  4. INFLECTRA [Suspect]
     Active Substance: INFLIXIMAB-DYYB
     Dosage: 10 MG/KG, THEN 5 MG/KG EVERY 6 WEEKS AND LATER Q 8 WEEKS
     Route: 042
     Dates: start: 20220503, end: 20220503
  5. INFLECTRA [Suspect]
     Active Substance: INFLIXIMAB-DYYB
     Dosage: 10 MG/KG, STAT DOSE
     Route: 042
     Dates: start: 20220519, end: 20220519
  6. INFLECTRA [Suspect]
     Active Substance: INFLIXIMAB-DYYB
     Dosage: 10 MG/KG, EVERY 6 WEEK,WEEK 6 THEN MAINTENANCE
     Route: 042
     Dates: start: 20220614, end: 20220614
  7. INFLECTRA [Suspect]
     Active Substance: INFLIXIMAB-DYYB
     Dosage: 10 MG/KG, EVERY 6 WEEK,WEEK 6 THEN MAINTENANCE
     Route: 042
     Dates: start: 20220614, end: 20220614
  8. PREDNISONE [Concomitant]
     Active Substance: PREDNISONE
     Dosage: 8 TABLETS, PRESCRIBED FOR 8 WEEKS LONG
     Route: 048
     Dates: start: 20220310, end: 20220310
  9. PREDNISONE [Concomitant]
     Active Substance: PREDNISONE
     Dosage: 40 MG DAILY FOR 1 MONTH THEN REDUCE BY 5MG EACH WEEK
     Route: 048
  10. PREDNISONE [Concomitant]
     Active Substance: PREDNISONE
     Dosage: 1 DF, 8 TABLETS, PRESCRIBED FOR 8 WEEKS LONG
     Route: 048
     Dates: start: 20220310
  11. XELJANZ [Concomitant]
     Active Substance: TOFACITINIB CITRATE
     Indication: Colitis ulcerative
     Dosage: UNK
  12. XELJANZ [Concomitant]
     Active Substance: TOFACITINIB CITRATE
     Dosage: 10 MG, 2X/DAY,FOR 8 WEEKS
     Route: 048
     Dates: start: 20220728

REACTIONS (13)
  - Colitis ulcerative [Not Recovered/Not Resolved]
  - Drug ineffective [Unknown]
  - Off label use [Unknown]
  - Off label use [Unknown]
  - Inappropriate schedule of product administration [Unknown]
  - Incorrect dose administered [Not Recovered/Not Resolved]
  - Malaise [Not Recovered/Not Resolved]
  - Oropharyngeal pain [Not Recovered/Not Resolved]
  - Condition aggravated [Recovering/Resolving]
  - Cough [Not Recovered/Not Resolved]
  - Fatigue [Not Recovered/Not Resolved]
  - COVID-19 [Recovered/Resolved]
  - Diarrhoea [Unknown]

NARRATIVE: CASE EVENT DATE: 20220101
